FAERS Safety Report 4887113-5 (Version None)
Quarter: 2006Q1

REPORT INFORMATION
  Report Type: 
  Country: None (occurrence: None)
  Receive Date: 20060118
  Receipt Date: 20060110
  Transmission Date: 20060701
  Serious: Yes (Hospitalization)
  Sender: FDA-Public Use
  Company Number: 2005BI018643

PATIENT
  Age: 64 Year
  Sex: Female

DRUGS (2)
  1. AVONEX [Suspect]
     Indication: MULTIPLE SCLEROSIS
     Dosage: IM
     Route: 030
  2. AMANTADINE HCL [Concomitant]

REACTIONS (8)
  - ANGER [None]
  - ANGINA PECTORIS [None]
  - CORONARY ARTERY STENOSIS [None]
  - DEPRESSION [None]
  - INFLUENZA LIKE ILLNESS [None]
  - PLATELET COUNT INCREASED [None]
  - STENT PLACEMENT [None]
  - THROMBOCYTHAEMIA [None]
